FAERS Safety Report 7356711-1 (Version None)
Quarter: 2011Q1

REPORT INFORMATION
  Report Type: 
  Country: None (occurrence: None)
  Receive Date: 20110316
  Receipt Date: 20110307
  Transmission Date: 20110831
  Serious: Yes (Hospitalization, Other)
  Sender: FDA-Public Use
  Company Number: US-AMGEN-USASP2011012783

PATIENT
  Age: 48 Year
  Sex: Female

DRUGS (1)
  1. ENBREL [Suspect]
     Indication: PAIN
     Dosage: UNK
     Dates: end: 20050101

REACTIONS (5)
  - VISUAL IMPAIRMENT [None]
  - MULTIPLE SCLEROSIS [None]
  - MIGRAINE [None]
  - INTERVERTEBRAL DISC COMPRESSION [None]
  - NECK PAIN [None]
